FAERS Safety Report 23937829 (Version 1)
Quarter: 2024Q2

REPORT INFORMATION
  Report Type: Spontaneous
  Country: US (occurrence: None)
  Receive Date: 20240603
  Receipt Date: 20240603
  Transmission Date: 20240716
  Serious: No
  Sender: FDA-Public Use
  Company Number: None

PATIENT
  Age: 72 Year
  Sex: Female
  Weight: 63 kg

DRUGS (7)
  1. METRONIDAZOLE [Suspect]
     Active Substance: METRONIDAZOLE
     Indication: Preoperative care
     Dates: start: 20240521, end: 20240521
  2. METRONIDAZOLE [Suspect]
     Active Substance: METRONIDAZOLE
     Indication: Rectal prolapse repair
  3. NEOMYCIN [Suspect]
     Active Substance: NEOMYCIN
  4. PEG 3350 [Suspect]
     Active Substance: POLYETHYLENE GLYCOL 3350
  5. Methimozole [Concomitant]
  6. TYLENOL [Concomitant]
     Active Substance: ACETAMINOPHEN
  7. GABAPENTIN [Suspect]
     Active Substance: GABAPENTIN

REACTIONS (4)
  - Nausea [None]
  - Vomiting [None]
  - Malaise [None]
  - Discomfort [None]

NARRATIVE: CASE EVENT DATE: 20240521
